FAERS Safety Report 9699583 (Version 2)
Quarter: 2014Q1

REPORT INFORMATION
  Report Type: Spontaneous
  Country: US (occurrence: US)
  Receive Date: 20131120
  Receipt Date: 20140116
  Transmission Date: 20141002
  Serious: Yes (Other)
  Sender: FDA-Public Use
  Company Number: US-ASTRAZENECA-2013SE83611

PATIENT
  Age: 59 Year
  Sex: Male

DRUGS (2)
  1. LISINOPRIL+HYDROCHLOROTHIAZIDE [Suspect]
     Dosage: 20/25 MG
     Route: 048
  2. NABUMETONE [Suspect]

REACTIONS (5)
  - Metabolic acidosis [Recovering/Resolving]
  - Renal failure acute [Recovering/Resolving]
  - Hypotension [Recovered/Resolved]
  - Anaemia [Unknown]
  - Hyperkalaemia [Recovering/Resolving]
